FAERS Safety Report 8497863-X (Version None)
Quarter: 2012Q3

REPORT INFORMATION
  Report Type: 
  Country: None (occurrence: None)
  Receive Date: 20120709
  Receipt Date: 20120613
  Transmission Date: 20120928
  Serious: No
  Sender: FDA-Public Use
  Company Number: US-AMGEN-USASP2012036839

PATIENT
  Sex: Female

DRUGS (1)
  1. ENBREL [Suspect]
     Indication: RHEUMATOID ARTHRITIS
     Dosage: 50 MG ONCE IN 14 DAYS
     Dates: start: 20081208

REACTIONS (4)
  - PANCREATIC DISORDER [None]
  - HYPERSOMNIA [None]
  - FATIGUE [None]
  - RENAL DISORDER [None]
